FAERS Safety Report 12220784 (Version 4)
Quarter: 2016Q2

REPORT INFORMATION
  Report Type: Report from Study
  Country: GB (occurrence: GB)
  Receive Date: 20160330
  Receipt Date: 20160509
  Transmission Date: 20160815
  Serious: Yes (Hospitalization, Other)
  Sender: FDA-Public Use
  Company Number: PHFR2013GB005397

PATIENT
  Age: 67 Year
  Sex: Male
  Weight: 74.9 kg

DRUGS (3)
  1. AFINITOR [Suspect]
     Active Substance: EVEROLIMUS
     Dosage: UNK
     Route: 048
     Dates: end: 20160226
  2. FELODIPINE. [Concomitant]
     Active Substance: FELODIPINE
     Indication: BLOOD PRESSURE ABNORMAL
     Dosage: 5 MG, QD
     Route: 065
     Dates: start: 2006
  3. AFINITOR [Suspect]
     Active Substance: EVEROLIMUS
     Indication: PANCREATIC NEUROENDOCRINE TUMOUR
     Dosage: 10 MG, QD
     Route: 048
     Dates: start: 20130805, end: 20160204

REACTIONS (35)
  - Stomatitis [Recovered/Resolved]
  - Rash [Recovered/Resolved]
  - Stomatitis [Recovered/Resolved with Sequelae]
  - Blepharitis [Recovered/Resolved]
  - Pyrexia [Recovered/Resolved]
  - Cellulitis orbital [Recovered/Resolved]
  - Fatigue [Recovered/Resolved]
  - Onychoclasis [Recovered/Resolved]
  - Tinea infection [Recovered/Resolved]
  - Stomatitis [Not Recovered/Not Resolved]
  - Cough [Recovered/Resolved]
  - Mouth ulceration [Recovering/Resolving]
  - Rash [Recovered/Resolved]
  - Nail bed disorder [Unknown]
  - Hypertension [Not Recovered/Not Resolved]
  - Oral discomfort [Recovered/Resolved]
  - Oral candidiasis [Recovered/Resolved]
  - Nail disorder [Recovered/Resolved]
  - Upper respiratory tract infection [Recovered/Resolved]
  - Conjunctivitis [Recovered/Resolved]
  - Headache [Recovered/Resolved]
  - Diarrhoea [Recovered/Resolved]
  - Upper respiratory tract infection [Recovered/Resolved]
  - Stomatitis [Recovered/Resolved with Sequelae]
  - Cough [Recovered/Resolved]
  - Bone pain [Recovered/Resolved]
  - Productive cough [Recovered/Resolved]
  - Productive cough [Recovered/Resolved]
  - Mucosal inflammation [Recovered/Resolved]
  - Discomfort [Recovered/Resolved]
  - Sinusitis [Recovered/Resolved]
  - Stomatitis [Recovered/Resolved]
  - Chest pain [Recovered/Resolved]
  - Nasopharyngitis [Recovered/Resolved]
  - Nasopharyngitis [Recovered/Resolved]

NARRATIVE: CASE EVENT DATE: 2013
